FAERS Safety Report 5234866-2 (Version None)
Quarter: 2007Q1

REPORT INFORMATION
  Report Type: 
  Country: None (occurrence: None)
  Receive Date: 20070209
  Receipt Date: 20070130
  Transmission Date: 20070707
  Serious: Yes (Hospitalization, Other)
  Sender: FDA-Public Use
  Company Number: JP-PFIZER INC-2007008351

PATIENT
  Sex: Female
  Weight: 36 kg

DRUGS (20)
  1. DELTA-CORTEF [Suspect]
     Indication: RHEUMATOID ARTHRITIS
     Route: 048
  2. ETANERCEPT [Suspect]
     Indication: RHEUMATOID ARTHRITIS
     Route: 058
     Dates: start: 20050309, end: 20060921
  3. GASTER [Concomitant]
     Indication: PROPHYLAXIS AGAINST GASTROINTESTINAL ULCER
  4. BUFFERIN [Concomitant]
     Indication: PROPHYLAXIS
     Route: 048
  5. PITAVASTATIN CALCIUM [Concomitant]
     Indication: HYPERLIPIDAEMIA
     Route: 048
  6. LOSARTAN POTASSIUM [Concomitant]
     Indication: HYPERTENSION
     Route: 048
  7. RISEDRONIC ACID [Concomitant]
     Indication: OSTEOPOROSIS
     Route: 048
  8. FERROUS CITRATE [Concomitant]
  9. PRAVASTATIN SODIUM [Concomitant]
  10. UBIDECARENONE [Concomitant]
  11. DOXAZOSIN MESYLATE [Concomitant]
  12. FLURBIPROFEN [Concomitant]
  13. BROTIZOLAM [Concomitant]
  14. LOXOPROFEN SODIUM [Concomitant]
     Indication: RHEUMATOID ARTHRITIS
  15. TEPRENONE [Concomitant]
  16. FEXOFENADINE HYDROCHLORIDE [Concomitant]
  17. EURAX H [Concomitant]
  18. CANDESARTAN CILEXETIL [Concomitant]
  19. SULFASALAZINE [Concomitant]
     Indication: RHEUMATOID ARTHRITIS
     Dates: start: 20051026, end: 20060515
  20. NATEGLINIDE [Concomitant]

REACTIONS (6)
  - BLOOD POTASSIUM INCREASED [None]
  - CRYPTOCOCCOSIS [None]
  - PNEUMOCYSTIS JIROVECI PNEUMONIA [None]
  - PNEUMONIA [None]
  - PNEUMONIA MYCOPLASMAL [None]
  - VOMITING [None]
